FAERS Safety Report 4993697-9 (Version None)
Quarter: 2006Q2

REPORT INFORMATION
  Report Type: 
  Country: None (occurrence: None)
  Receive Date: 20060505
  Receipt Date: 20060425
  Transmission Date: 20061013
  Serious: Yes (Hospitalization)
  Sender: FDA-Public Use
  Company Number: US-MERCK-0604USA04059

PATIENT
  Age: 53 Year
  Sex: Male
  Weight: 125 kg

DRUGS (10)
  1. VIOXX [Suspect]
     Indication: OSTEOARTHRITIS
     Route: 048
     Dates: start: 20000601, end: 20000801
  2. ACTOS [Concomitant]
     Route: 065
  3. NOVOLIN [Concomitant]
     Route: 065
  4. PRANDIN [Concomitant]
     Route: 065
  5. LANOXIN [Concomitant]
     Route: 065
  6. ATENOLOL [Concomitant]
     Route: 065
  7. K-DUR 10 [Concomitant]
     Route: 065
  8. LAMISIL [Concomitant]
     Route: 065
  9. LIPITOR [Concomitant]
     Route: 065
  10. PRINIVIL [Concomitant]
     Route: 048

REACTIONS (2)
  - ATRIAL FIBRILLATION [None]
  - MYOCARDIAL INFARCTION [None]
